FAERS Safety Report 25866429 (Version 2)
Quarter: 2025Q4

REPORT INFORMATION
  Report Type: Spontaneous
  Country: US (occurrence: US)
  Receive Date: 20250930
  Receipt Date: 20251024
  Transmission Date: 20260117
  Serious: No
  Sender: BRISTOL-MYERS SQUIBB COMPANY
  Company Number: US-BRISTOL-MYERS SQUIBB COMPANY-2025-132455

PATIENT
  Age: 55 Year
  Sex: Female

DRUGS (2)
  1. REVLIMID [Suspect]
     Active Substance: LENALIDOMIDE
     Indication: B-cell lymphoma
     Dosage: QD
  2. REVLIMID [Suspect]
     Active Substance: LENALIDOMIDE

REACTIONS (3)
  - Peripheral swelling [Unknown]
  - Joint swelling [Not Recovered/Not Resolved]
  - Off label use [Unknown]
